FAERS Safety Report 17525779 (Version 1)
Quarter: 2020Q1

REPORT INFORMATION
  Report Type: Report from Study
  Country: CA (occurrence: CA)
  Receive Date: 20200311
  Receipt Date: 20200311
  Transmission Date: 20200409
  Serious: Yes (Other)
  Sender: FDA-Public Use
  Company Number: CA-GLAXOSMITHKLINE-CA2017GSK154880

PATIENT
  Sex: Female

DRUGS (3)
  1. MEPOLIZUMAB [Suspect]
     Active Substance: MEPOLIZUMAB
     Indication: ASTHMA
     Dosage: 100 MG, Z
     Route: 042
     Dates: start: 20171005
  2. BREO ELLIPTA [Suspect]
     Active Substance: FLUTICASONE FUROATE\VILANTEROL TRIFENATATE
     Indication: ASTHMA
     Dosage: 2 PUFF(S), BID
  3. XOLAIR [Suspect]
     Active Substance: OMALIZUMAB
     Indication: PRODUCT USED FOR UNKNOWN INDICATION
     Dosage: UNK

REACTIONS (11)
  - Eructation [Unknown]
  - Rash erythematous [Recovered/Resolved]
  - Asthma [Unknown]
  - Diarrhoea [Unknown]
  - Rash papular [Recovered/Resolved]
  - Nausea [Unknown]
  - Headache [Unknown]
  - Blood count abnormal [Unknown]
  - Rash pruritic [Recovered/Resolved]
  - Product dose omission [Unknown]
  - Therapeutic product effect incomplete [Unknown]
